FAERS Safety Report 7525900-5 (Version None)
Quarter: 2011Q2

REPORT INFORMATION
  Report Type: 
  Country: None (occurrence: None)
  Receive Date: 20110606
  Receipt Date: 20110525
  Transmission Date: 20111010
  Serious: Yes (Other)
  Sender: FDA-Public Use
  Company Number: B0708008A

PATIENT
  Sex: Female
  Weight: 61 kg

DRUGS (14)
  1. PROMACTA [Suspect]
     Dosage: 50MG PER DAY
     Route: 048
     Dates: start: 20110128, end: 20110413
  2. LANSOPRAZOLE [Concomitant]
     Dosage: 30MG PER DAY
     Route: 048
  3. PROMACTA [Suspect]
     Indication: IDIOPATHIC THROMBOCYTOPENIC PURPURA
     Dosage: 12.5MG PER DAY
     Route: 048
     Dates: start: 20101230, end: 20110104
  4. CONIEL [Concomitant]
     Dosage: 4MG PER DAY
     Route: 048
  5. BACTRIM [Concomitant]
     Indication: PROPHYLAXIS
     Dosage: 1IUAX PER DAY
     Route: 048
  6. VENOGLOBULIN [Concomitant]
     Indication: IDIOPATHIC THROMBOCYTOPENIC PURPURA
     Dosage: 20MG PER DAY
     Route: 042
     Dates: start: 20101227, end: 20110518
  7. FERRUM [Concomitant]
     Indication: IDIOPATHIC THROMBOCYTOPENIC PURPURA
     Dosage: 100MG PER DAY
     Route: 048
     Dates: start: 20110317
  8. PROMACTA [Suspect]
     Dosage: 25MG PER DAY
     Route: 048
     Dates: start: 20110105
  9. PROMACTA [Suspect]
     Dosage: 37.5MG PER DAY
     Route: 048
     Dates: start: 20110121, end: 20110127
  10. BASEN [Concomitant]
     Dosage: .9MG PER DAY
     Route: 048
     Dates: start: 20110106
  11. PREDNISOLONE [Concomitant]
     Indication: IDIOPATHIC THROMBOCYTOPENIC PURPURA
     Dosage: 25MG PER DAY
     Route: 048
  12. BENET [Concomitant]
     Dosage: 2.5MG PER DAY
     Route: 048
  13. NEORAL [Concomitant]
     Indication: IDIOPATHIC THROMBOCYTOPENIC PURPURA
     Dosage: 100MG PER DAY
     Route: 048
     Dates: start: 20110113
  14. AMARYL [Concomitant]
     Dosage: 1MG PER DAY
     Route: 048
     Dates: start: 20110106

REACTIONS (1)
  - CEREBRAL HAEMORRHAGE [None]
